FAERS Safety Report 13736920 (Version 1)
Quarter: 2017Q3

REPORT INFORMATION
  Report Type: Spontaneous
  Country: US (occurrence: US)
  Receive Date: 20170710
  Receipt Date: 20170710
  Transmission Date: 20171127
  Serious: Yes (Hospitalization)
  Sender: FDA-Public Use
  Company Number: None

PATIENT
  Age: 56 Year
  Sex: Male
  Weight: 125.1 kg

DRUGS (16)
  1. CLOTRIMAZOLE-BETAMETHASONE LOTRISONE [Concomitant]
  2. COLLAGENASE SANTYL [Concomitant]
     Active Substance: COLLAGENASE CLOSTRIDIUM HISTOLYTICUM
  3. METFORMIN HCL GLUCOPHAGE [Concomitant]
  4. ASPIRIN (TIME DELAYED RELEASE) [Concomitant]
  5. INSULIN GLARGINE LANTUS [Concomitant]
  6. LISINOPRIL PRINIVIL, ZESTRIL [Concomitant]
  7. CARVEDILOL COREG [Concomitant]
  8. CITALOPRAM HYDROBROMIDE CELEXA [Concomitant]
  9. NEURONTIN [Concomitant]
     Active Substance: GABAPENTIN
  10. VORAPAXAR [Suspect]
     Active Substance: VORAPAXAR
     Indication: CORONARY ARTERY DISEASE
     Dosage: ?          OTHER DOSE:MG;?
     Route: 048
     Dates: start: 20170523, end: 20170710
  11. ATORVASTATIN CALCIUM LIPITOR [Concomitant]
  12. CLOPIDOGREL BISULFATE PLAVIX [Concomitant]
  13. ZOLPIDEM TARTRATE AMBIEN [Concomitant]
  14. MUPIROCIN CALCIUM BACTROBAN [Concomitant]
  15. INSULIN REGULAR HUMAN HUMULIN R NOVOLIN R [Concomitant]
  16. CELEBREX [Concomitant]
     Active Substance: CELECOXIB

REACTIONS (1)
  - Hypotension [None]

NARRATIVE: CASE EVENT DATE: 20170706
